FAERS Safety Report 8144043-3 (Version None)
Quarter: 2012Q1

REPORT INFORMATION
  Report Type: 
  Country: None (occurrence: None)
  Receive Date: 20120217
  Receipt Date: 20120217
  Transmission Date: 20120608
  Serious: No
  Sender: FDA-Public Use
  Company Number: None

PATIENT
  Age: 72 Year
  Sex: Male
  Weight: 83.914 kg

DRUGS (1)
  1. METHOTREXATE [Suspect]
     Indication: PSORIATIC ARTHROPATHY
     Dosage: 4 PILLS
     Route: 048
     Dates: start: 20110915, end: 20111007

REACTIONS (2)
  - PRODUCT SUBSTITUTION ISSUE [None]
  - INFLUENZA LIKE ILLNESS [None]
